FAERS Safety Report 17815891 (Version 1)
Quarter: 2020Q2

REPORT INFORMATION
  Report Type: Spontaneous
  Country: CN (occurrence: CN)
  Receive Date: 20200522
  Receipt Date: 20200522
  Transmission Date: 20200714
  Serious: Yes (Hospitalization)
  Sender: FDA-Public Use
  Company Number: CN-BAYER-2020-085410

PATIENT
  Age: 48 Year
  Sex: Male

DRUGS (9)
  1. AVELOX [Suspect]
     Active Substance: MOXIFLOXACIN HYDROCHLORIDE
     Indication: PNEUMONIA VIRAL
     Dosage: UNK
     Dates: start: 20200207
  2. RIBAVIRIN. [Concomitant]
     Active Substance: RIBAVIRIN
     Indication: ANTIVIRAL TREATMENT
     Dosage: UNK
     Dates: start: 20200207
  3. AZITHROMYCIN ANHYDROUS. [Concomitant]
     Active Substance: AZITHROMYCIN ANHYDROUS
     Indication: ANTIBIOTIC THERAPY
  4. AVELOX [Suspect]
     Active Substance: MOXIFLOXACIN HYDROCHLORIDE
     Indication: ANTIBIOTIC THERAPY
  5. METHYLPREDNISOLONE. [Concomitant]
     Active Substance: METHYLPREDNISOLONE
     Indication: INFLAMMATION
     Dosage: UNK
     Dates: start: 20200204
  6. AVELOX [Suspect]
     Active Substance: MOXIFLOXACIN HYDROCHLORIDE
     Indication: PNEUMONIA VIRAL
     Dosage: UNK
     Route: 048
     Dates: start: 20200204, end: 202002
  7. AVELOX [Suspect]
     Active Substance: MOXIFLOXACIN HYDROCHLORIDE
     Indication: ANTIBIOTIC THERAPY
  8. ARBIDOL [Concomitant]
     Active Substance: UMIFENOVIR
     Indication: ANTIVIRAL TREATMENT
     Dosage: UNK
     Dates: start: 20200204
  9. IMMUNE GLOBULIN NOS [Concomitant]
     Active Substance: IMMUNE GLOBULIN NOS
     Indication: DRUG THERAPY
     Dosage: UNK
     Dates: start: 20200204

REACTIONS (20)
  - Dyspnoea [Recovered/Resolved]
  - Blood sodium decreased [Recovered/Resolved]
  - Pyrexia [Recovered/Resolved]
  - Cough [Recovered/Resolved]
  - Alanine aminotransferase increased [None]
  - Blood fibrinogen increased [Recovered/Resolved]
  - Blood creatinine increased [Recovered/Resolved]
  - Haemoglobin decreased [None]
  - Platelet count increased [Recovered/Resolved]
  - CD8 lymphocytes decreased [Recovered/Resolved]
  - Blood albumin decreased [None]
  - C-reactive protein increased [Recovered/Resolved]
  - Lymphocyte count decreased [Recovered/Resolved]
  - CD4 lymphocytes decreased [Recovered/Resolved]
  - Blood fibrinogen decreased [None]
  - Blood urea increased [None]
  - Blood lactate dehydrogenase increased [Recovered/Resolved]
  - Procalcitonin increased [Recovered/Resolved]
  - Aspartate aminotransferase increased [None]
  - Red blood cell count decreased [None]

NARRATIVE: CASE EVENT DATE: 20200207
